FAERS Safety Report 4482211-2 (Version None)
Quarter: 2004Q4

REPORT INFORMATION
  Report Type: 
  Country: None (occurrence: None)
  Receive Date: 20041019
  Receipt Date: 20041019
  Transmission Date: 20050328
  Serious: Yes (Hospitalization)
  Sender: FDA-Public Use
  Company Number: None

PATIENT
  Sex: Male

DRUGS (14)
  1. OXYCODONE HCL [Suspect]
     Indication: PAIN
     Dosage: 5 MG Q 4 HR PRN ORAL
     Route: 048
  2. PENICILLIN [Concomitant]
  3. GENTAMYCIN SULFATE [Concomitant]
  4. MORPHINE [Concomitant]
  5. LORATADINE [Concomitant]
  6. SIMVASTATIN [Concomitant]
  7. SENNA [Concomitant]
  8. SALSALATE [Concomitant]
  9. PROCAINAMIDE [Concomitant]
  10. OMEPRAZOLE [Concomitant]
  11. LACTULOSE [Concomitant]
  12. FLUNISOLIDE [Concomitant]
  13. COMBIVENT [Concomitant]
  14. WARFARIN SODIUM [Concomitant]

REACTIONS (2)
  - CONSTIPATION [None]
  - INTESTINAL OBSTRUCTION [None]
